FAERS Safety Report 20120954 (Version 29)
Quarter: 2024Q1

REPORT INFORMATION
  Report Type: Spontaneous
  Country: CA (occurrence: CA)
  Receive Date: 20211127
  Receipt Date: 20240325
  Transmission Date: 20240409
  Serious: Yes (Hospitalization, Other)
  Sender: FDA-Public Use
  Company Number: CA-CELLTRION INC.-2021CA016089

PATIENT

DRUGS (21)
  1. INFLECTRA [Suspect]
     Active Substance: INFLIXIMAB-DYYB
     Indication: Crohn^s disease
     Dosage: 1000 MG, INDUCTION AT 0, 2, 6 THEN EVERY 6 WEEKS
     Route: 042
     Dates: start: 20211007
  2. INFLECTRA [Suspect]
     Active Substance: INFLIXIMAB-DYYB
     Dosage: 1000 MG, INDUCTION AT 0, 2, 6 THEN EVERY 6 WEEKS
     Route: 042
     Dates: start: 20211007
  3. INFLECTRA [Suspect]
     Active Substance: INFLIXIMAB-DYYB
     Dosage: 1000 MG, INDUCTION AT 0, 2, 6 THEN EVERY 6 WEEKS
     Route: 042
     Dates: start: 20220324
  4. INFLECTRA [Suspect]
     Active Substance: INFLIXIMAB-DYYB
     Dosage: 1000 MG, INDUCTION AT Q 0, 2, 6 WEEK THEN EVERY 6 WEEKS
     Route: 042
     Dates: start: 20220404
  5. INFLECTRA [Suspect]
     Active Substance: INFLIXIMAB-DYYB
     Dosage: 1000 MG, INDUCTION AT 0, 2, 6 THEN EVERY 6 WEEKS
     Route: 042
     Dates: start: 20220804
  6. INFLECTRA [Suspect]
     Active Substance: INFLIXIMAB-DYYB
     Dosage: UNK
     Route: 042
  7. INFLECTRA [Suspect]
     Active Substance: INFLIXIMAB-DYYB
     Dosage: 1000 MG, INDUCTION AT 0, 2, 6 THEN EVERY 6 WEEKS
     Route: 042
     Dates: start: 20221208
  8. INFLECTRA [Suspect]
     Active Substance: INFLIXIMAB-DYYB
     Dosage: UNK
     Route: 042
  9. INFLECTRA [Suspect]
     Active Substance: INFLIXIMAB-DYYB
     Dosage: UNK
     Route: 042
  10. INFLECTRA [Suspect]
     Active Substance: INFLIXIMAB-DYYB
     Dosage: 1000 MG, INDUCTION AT 0, 2, 6 THEN EVERY 6 WEEKS
     Route: 042
     Dates: start: 20230414
  11. INFLECTRA [Suspect]
     Active Substance: INFLIXIMAB-DYYB
     Dosage: UNK
     Route: 042
  12. INFLECTRA [Suspect]
     Active Substance: INFLIXIMAB-DYYB
     Dosage: 1000 MG, Q6 WEEKS FOR 12 MONTHS
     Route: 042
     Dates: start: 20230707
  13. INFLECTRA [Suspect]
     Active Substance: INFLIXIMAB-DYYB
     Dosage: 1000 MG, Q6 WEEKS
     Route: 042
  14. INFLECTRA [Suspect]
     Active Substance: INFLIXIMAB-DYYB
     Dosage: 1000 MG, EVERY 6 WEEKS
     Route: 042
  15. INFLECTRA [Suspect]
     Active Substance: INFLIXIMAB-DYYB
     Dosage: 1000 MG, EVERY 6 WEEKS
     Route: 042
  16. INFLECTRA [Suspect]
     Active Substance: INFLIXIMAB-DYYB
     Dosage: 1000 MG, EVERY 6 WEEKS
     Route: 042
  17. INFLECTRA [Suspect]
     Active Substance: INFLIXIMAB-DYYB
     Dosage: 1000 MG, INDUCTION AT 0, 2, 6 THEN EVERY 6 WEEKS
     Route: 042
     Dates: start: 20240202
  18. INFLECTRA [Suspect]
     Active Substance: INFLIXIMAB-DYYB
     Dosage: UNK
  19. INFLECTRA [Suspect]
     Active Substance: INFLIXIMAB-DYYB
     Dosage: UNK
  20. IRON [Concomitant]
     Active Substance: IRON
     Dosage: UNK
  21. PANTOPRAZOLE [Concomitant]
     Active Substance: PANTOPRAZOLE
     Dosage: UNK

REACTIONS (40)
  - Atrioventricular block [Not Recovered/Not Resolved]
  - Intestinal resection [Unknown]
  - Sinusitis bacterial [Recovered/Resolved]
  - Pyrexia [Not Recovered/Not Resolved]
  - Fractured sacrum [Not Recovered/Not Resolved]
  - Hand fracture [Not Recovered/Not Resolved]
  - Ligament rupture [Not Recovered/Not Resolved]
  - Road traffic accident [Recovering/Resolving]
  - Back disorder [Recovering/Resolving]
  - Therapeutic product effect delayed [Not Recovered/Not Resolved]
  - Therapeutic product effect incomplete [Unknown]
  - Condition aggravated [Recovering/Resolving]
  - Malaise [Unknown]
  - Feeling abnormal [Unknown]
  - Joint swelling [Not Recovered/Not Resolved]
  - Inflammation [Not Recovered/Not Resolved]
  - Defaecation urgency [Not Recovered/Not Resolved]
  - Asthenia [Unknown]
  - Skin exfoliation [Unknown]
  - Vitiligo [Not Recovered/Not Resolved]
  - Blood iron decreased [Recovering/Resolving]
  - Skin abrasion [Recovering/Resolving]
  - Road traffic accident [Recovering/Resolving]
  - Concussion [Recovering/Resolving]
  - Incision site pain [Unknown]
  - Myalgia [Not Recovered/Not Resolved]
  - Heart rate increased [Unknown]
  - Nausea [Recovering/Resolving]
  - Arthralgia [Not Recovered/Not Resolved]
  - Headache [Not Recovered/Not Resolved]
  - Dry skin [Unknown]
  - COVID-19 [Recovered/Resolved]
  - Peripheral swelling [Not Recovered/Not Resolved]
  - Influenza like illness [Unknown]
  - Gastrointestinal bacterial overgrowth [Not Recovered/Not Resolved]
  - COVID-19 [Recovered/Resolved]
  - Off label use [Unknown]
  - Off label use [Unknown]
  - Intentional product use issue [Unknown]
  - Off label use [Unknown]

NARRATIVE: CASE EVENT DATE: 20211007
